FAERS Safety Report 5036867-6 (Version None)
Quarter: 2006Q2

REPORT INFORMATION
  Report Type: 
  Country: None (occurrence: None)
  Receive Date: 20060622
  Receipt Date: 20060612
  Transmission Date: 20061013
  Serious: Yes (Hospitalization)
  Sender: FDA-Public Use
  Company Number: 2006VX000658

PATIENT
  Age: 44 Year
  Sex: Female
  Weight: 74.8435 kg

DRUGS (5)
  1. MESTINON [Suspect]
     Indication: MUSCULAR WEAKNESS
     Dosage: 30 MG; QID; PO
     Route: 048
     Dates: start: 20060604
  2. PROPRANOLOL HYDROCHLORIDE [Concomitant]
  3. HYDROCHLOROTHIAZIDE [Concomitant]
  4. ESTRADIOL [Concomitant]
  5. TYLENOL (CAPLET) [Concomitant]

REACTIONS (14)
  - APHASIA [None]
  - CHOLINERGIC SYNDROME [None]
  - CONFUSIONAL STATE [None]
  - CONVULSION [None]
  - DISTURBANCE IN ATTENTION [None]
  - FEELING HOT [None]
  - FLUSHING [None]
  - HOT FLUSH [None]
  - HYPOAESTHESIA ORAL [None]
  - LOSS OF CONSCIOUSNESS [None]
  - NAUSEA [None]
  - TREMOR [None]
  - UNEVALUABLE EVENT [None]
  - URTICARIA [None]
